FAERS Safety Report 21818668 (Version 1)
Quarter: 2023Q1

REPORT INFORMATION
  Report Type: Spontaneous
  Country: US (occurrence: None)
  Receive Date: 20230104
  Receipt Date: 20230104
  Transmission Date: 20230418
  Serious: Yes (Hospitalization)
  Sender: FDA-Public Use
  Company Number: None

PATIENT
  Age: 66 Year
  Sex: Male
  Weight: 64.3 kg

DRUGS (2)
  1. KYPROLIS [Suspect]
     Active Substance: CARFILZOMIB
     Indication: Plasma cell myeloma
     Dosage: FREQUENCY : WEEKLY;?
     Route: 042
     Dates: start: 20221110
  2. KYPROLIS [Concomitant]
     Active Substance: CARFILZOMIB

REACTIONS (4)
  - Altered state of consciousness [None]
  - Pyrexia [None]
  - Infusion related reaction [None]
  - Blood glucose increased [None]

NARRATIVE: CASE EVENT DATE: 20230103
